FAERS Safety Report 9905257 (Version 1)
Quarter: 2013Q2

REPORT INFORMATION
  Report Type: Spontaneous
  Country: US (occurrence: None)
  Receive Date: 20130305
  Receipt Date: 20130305
  Transmission Date: 20140414
  Serious: Yes (Other)
  Sender: FDA-Public Use
  Company Number: 1000041362

PATIENT
  Age: 81 Year
  Sex: Female

DRUGS (9)
  1. DALIRESP (ROFLUMILAST) (500 MICROGRAM, TABLETS) [Suspect]
     Indication: EMPHYSEMA
     Route: 048
     Dates: start: 20121222, end: 20121229
  2. SPIRIVA (TIOTROPIUM BROMIDE) (TIOTROPIUM BROMIDE) [Concomitant]
  3. NEXIUM (ESOMEPRAZOLE) (ESOMEPRAZOLE) [Concomitant]
  4. LISINOPRIL (LISINOPRIL) (LISINOPRIL) [Concomitant]
  5. PRAVASTATIN (PRAVASTATIN) (PRAVASTATIN) [Concomitant]
  6. NAPROXEN (NAPROXEN) (NAPROXEN) [Concomitant]
  7. OXYBUTYNIN (OXYBUTYNIN) (OXYBUTYNIN) [Concomitant]
  8. VITAMIN D (VITAMIN D) (VITAMIN D) [Concomitant]
  9. MVI (VITAMINS NOS) (VITAMINS NOS) [Concomitant]

REACTIONS (4)
  - Decreased appetite [None]
  - Hyperhidrosis [None]
  - Chills [None]
  - Off label use [None]
